FAERS Safety Report 9694024 (Version 1)
Quarter: 2013Q4

REPORT INFORMATION
  Report Type: Spontaneous
  Country: US (occurrence: US)
  Receive Date: 20131118
  Receipt Date: 20131118
  Transmission Date: 20140711
  Serious: No
  Sender: FDA-Public Use
  Company Number: US-B.I. PHARMACEUTICALS,INC./RIDGEFIELD-2013-BI-36126BP

PATIENT
  Age: 66 Year
  Sex: Male
  Weight: 127 kg

DRUGS (2)
  1. COMBIVENT [Suspect]
     Indication: WHEEZING
     Dosage: STRENGTH: 20 MCG / 100 MCG; DAILY DOSE: 240MCG/1200MCG
     Route: 055
     Dates: start: 20130905
  2. LIPITOR [Concomitant]
     Indication: BLOOD CHOLESTEROL INCREASED
     Route: 048

REACTIONS (2)
  - Overdose [Not Recovered/Not Resolved]
  - Off label use [Not Recovered/Not Resolved]
